FAERS Safety Report 5223354-5 (Version None)
Quarter: 2007Q1

REPORT INFORMATION
  Report Type: 
  Country: None (occurrence: None)
  Receive Date: 20070124
  Receipt Date: 20070109
  Transmission Date: 20070707
  Serious: No
  Sender: FDA-Public Use
  Company Number: 235189

PATIENT
  Age: 75 Year
  Sex: Male

DRUGS (4)
  1. AVASTIN [Suspect]
     Indication: COLON CANCER METASTATIC
     Dosage: 5 MG/KG, INTRAVENOUS
     Route: 042
     Dates: start: 20060909, end: 20061012
  2. FLUOROURACIL [Suspect]
     Indication: COLON CANCER METASTATIC
     Dosage: 2800 MG/M2, INTRAVENOUS
     Route: 042
     Dates: start: 20060711
  3. IRINOTECAN HCL [Concomitant]
  4. LEUCOVORIN CALCIUM [Concomitant]

REACTIONS (3)
  - CEREBRAL DISORDER [None]
  - HAEMANGIOMA [None]
  - VERTIGO [None]
